FAERS Safety Report 20931753 (Version 3)
Quarter: 2022Q2

REPORT INFORMATION
  Report Type: Spontaneous
  Country: AU (occurrence: None)
  Receive Date: 20220608
  Receipt Date: 20220615
  Transmission Date: 20220720
  Serious: Yes (Other)
  Sender: FDA-Public Use
  Company Number: AU-ROCHE-3111469

PATIENT
  Sex: Male

DRUGS (21)
  1. RITUXIMAB [Suspect]
     Active Substance: RITUXIMAB
     Indication: Diffuse large B-cell lymphoma
     Dosage: 1ST LINE SYSTEMIC TREATMENT, RCHOP X6 + HD-MTX X2
     Route: 065
     Dates: start: 20180511, end: 20180824
  2. RITUXIMAB [Suspect]
     Active Substance: RITUXIMAB
     Dosage: 2ND LINE SYSTEMIC TREATMENT, R-DHAC
     Route: 065
     Dates: start: 20211005, end: 20211112
  3. RITUXIMAB [Suspect]
     Active Substance: RITUXIMAB
     Dosage: 3RD SYSTEMIC TREATMENT, DA-R-EPOCH
     Route: 065
     Dates: start: 20220116, end: 20220201
  4. CYCLOPHOSPHAMIDE [Suspect]
     Active Substance: CYCLOPHOSPHAMIDE
     Indication: Diffuse large B-cell lymphoma
     Dosage: 1ST LINE SYSTEMIC TREATMENT, RCHOP X6 + HD-MTX X2
     Route: 065
     Dates: start: 20180511, end: 20180824
  5. CYCLOPHOSPHAMIDE [Suspect]
     Active Substance: CYCLOPHOSPHAMIDE
     Dosage: 3RD SYSTEMIC TREATMENT, DA-R-EPOCH
     Route: 065
     Dates: start: 20220116, end: 20220201
  6. DOXORUBICIN [Suspect]
     Active Substance: DOXORUBICIN
     Indication: Diffuse large B-cell lymphoma
     Dosage: 1ST LINE SYSTEMIC TREATMENT, RCHOP X6 + HD-MTX X2
     Route: 065
     Dates: start: 20180511, end: 20180824
  7. DOXORUBICIN [Suspect]
     Active Substance: DOXORUBICIN
     Dosage: 3RD SYSTEMIC TREATMENT, DA-R-EPOCH
     Route: 065
     Dates: start: 20220116, end: 20220201
  8. VINCRISTINE [Suspect]
     Active Substance: VINCRISTINE
     Indication: Diffuse large B-cell lymphoma
     Dosage: 1ST LINE SYSTEMIC TREATMENT, RCHOP X6 + HD-MTX X2
     Route: 065
     Dates: start: 20180511, end: 20180824
  9. VINCRISTINE [Suspect]
     Active Substance: VINCRISTINE
     Dosage: 3RD SYSTEMIC TREATMENT, DA-R-EPOCH
     Route: 065
     Dates: start: 20220116, end: 20220201
  10. PREDNISOLONE [Suspect]
     Active Substance: PREDNISOLONE
     Indication: Diffuse large B-cell lymphoma
     Dosage: 1ST LINE SYSTEMIC TREATMENT, RCHOP X6 + HD-MTX X2
     Route: 065
     Dates: start: 20180511, end: 20180824
  11. PREDNISOLONE [Suspect]
     Active Substance: PREDNISOLONE
     Dosage: 3RD SYSTEMIC TREATMENT, DA-R-EPOCH
     Route: 065
     Dates: start: 20220116, end: 20220201
  12. METHOTREXATE [Suspect]
     Active Substance: METHOTREXATE
     Indication: Diffuse large B-cell lymphoma
     Dosage: RCHOP X6 + HD-MTX X2
     Route: 065
     Dates: start: 201805, end: 201810
  13. DEXAMETHASONE [Suspect]
     Active Substance: DEXAMETHASONE
     Indication: Diffuse large B-cell lymphoma
     Dosage: 2ND LINE SYSTEMIC TREATMENT, R-DHAC
     Route: 065
     Dates: start: 20211005, end: 20211112
  14. CARBOPLATIN [Suspect]
     Active Substance: CARBOPLATIN
     Indication: Diffuse large B-cell lymphoma
     Dosage: 2ND LINE SYSTEMIC TREATMENT, R-DHAC
     Route: 065
     Dates: start: 20211005, end: 20211112
  15. CYTARABINE [Suspect]
     Active Substance: CYTARABINE
     Indication: Diffuse large B-cell lymphoma
     Dosage: 2ND LINE SYSTEMIC TREATMENT, R-DHAC
     Route: 065
     Dates: start: 20211005, end: 20211112
  16. ETOPOSIDE [Suspect]
     Active Substance: ETOPOSIDE
     Indication: Diffuse large B-cell lymphoma
     Dosage: 3RD SYSTEMIC TREATMENT, DA-R-EPOCH
     Route: 065
     Dates: start: 20220116, end: 20220201
  17. FILGRASTIM [Suspect]
     Active Substance: FILGRASTIM
     Indication: Diffuse large B-cell lymphoma
     Route: 065
  18. ALLOPURINOL [Concomitant]
     Active Substance: ALLOPURINOL
     Indication: Gout
     Route: 065
  19. FILGRASTIM [Concomitant]
     Active Substance: FILGRASTIM
     Dosage: 300 MCG
     Route: 058
  20. PANTOPRAZOLE [Concomitant]
     Active Substance: PANTOPRAZOLE
  21. SULFAMETHOXAZOLE\TRIMETHOPRIM [Concomitant]
     Active Substance: SULFAMETHOXAZOLE\TRIMETHOPRIM
     Dosage: RESPRIM FORTE 1 DAILY ON MON/WED/FRI

REACTIONS (4)
  - Diffuse large B-cell lymphoma refractory [Unknown]
  - Neuropathy peripheral [Unknown]
  - Disease progression [Unknown]
  - Gilbert^s syndrome [Unknown]
